FAERS Safety Report 7331943-7 (Version None)
Quarter: 2011Q1

REPORT INFORMATION
  Report Type: 
  Country: None (occurrence: None)
  Receive Date: 20110228
  Receipt Date: 20110228
  Transmission Date: 20110831
  Serious: Yes (Disabling)
  Sender: FDA-Public Use
  Company Number: None

PATIENT
  Sex: Female

DRUGS (2)
  1. CYMBALTA [Suspect]
     Indication: DEPRESSION
     Dosage: 20MG - 30MG ONCE A DAY TO TWICE A DAY PO
     Route: 048
     Dates: start: 20090817, end: 20090922
  2. CYMBALTA [Suspect]
     Indication: ANXIETY
     Dosage: 20MG - 30MG ONCE A DAY TO TWICE A DAY PO
     Route: 048
     Dates: start: 20090817, end: 20090922

REACTIONS (3)
  - CHILLS [None]
  - BRUXISM [None]
  - TARDIVE DYSKINESIA [None]
